FAERS Safety Report 7930145-0 (Version None)
Quarter: 2011Q4

REPORT INFORMATION
  Report Type: 
  Country: None (occurrence: None)
  Receive Date: 20111118
  Receipt Date: 20111118
  Transmission Date: 20120403
  Serious: Yes (Life-Threatening, Hospitalization)
  Sender: FDA-Public Use
  Company Number: None

PATIENT
  Sex: Female
  Weight: 65 kg

DRUGS (2)
  1. BENDAMUSTINE 100MG CEPHALON [Suspect]
     Indication: SMALL CELL LUNG CANCER STAGE UNSPECIFIED
     Dosage: 204MG EVERY 21 DAYS IV
     Route: 042
     Dates: start: 20111108
  2. BENDAMUSTINE 100MG CEPHALON [Suspect]
     Indication: SMALL CELL LUNG CANCER STAGE UNSPECIFIED
     Dosage: 204MG EVERY 21 DAYS IV
     Route: 042
     Dates: start: 20111109

REACTIONS (9)
  - ABDOMINAL DISTENSION [None]
  - POLLAKIURIA [None]
  - NAUSEA [None]
  - DRUG INEFFECTIVE [None]
  - URINE OUTPUT DECREASED [None]
  - DECREASED APPETITE [None]
  - FATIGUE [None]
  - ABDOMINAL PAIN LOWER [None]
  - SUPRAPUBIC PAIN [None]
